FAERS Safety Report 19811432 (Version 1)
Quarter: 2021Q3

REPORT INFORMATION
  Report Type: Spontaneous
  Country: US (occurrence: US)
  Receive Date: 20210909
  Receipt Date: 20210909
  Transmission Date: 20211014
  Serious: Yes (Hospitalization, Other)
  Sender: FDA-Public Use
  Company Number: US-HIKMA PHARMACEUTICALS USA INC.-US-H14001-21-55350

PATIENT
  Age: 37 Year
  Sex: Female

DRUGS (3)
  1. CEFEPIME [Concomitant]
     Active Substance: CEFEPIME HYDROCHLORIDE
     Indication: ESCHERICHIA BACTERAEMIA
     Dosage: UNKNOWN
     Route: 065
  2. LACTULOSE. [Suspect]
     Active Substance: LACTULOSE
     Indication: HEPATIC ENCEPHALOPATHY
     Dosage: AGGRESSIVE LACTULOSE THERAPY
     Route: 065
  3. VANCOMYCIN [Concomitant]
     Active Substance: VANCOMYCIN
     Indication: ESCHERICHIA BACTERAEMIA
     Dosage: UNKNOWN
     Route: 065

REACTIONS (1)
  - Pneumatosis intestinalis [Recovered/Resolved]
